FAERS Safety Report 13485170 (Version 1)
Quarter: 2017Q2

REPORT INFORMATION
  Report Type: Spontaneous
  Country: US (occurrence: US)
  Receive Date: 20170425
  Receipt Date: 20170425
  Transmission Date: 20170830
  Serious: Yes (Other)
  Sender: FDA-Public Use
  Company Number: US-BION-006199

PATIENT
  Age: 71 Year
  Sex: Male
  Weight: 104.09 kg

DRUGS (2)
  1. COUMADIN [Concomitant]
     Active Substance: WARFARIN SODIUM
  2. EQUATE IBUPROFEN [Suspect]
     Active Substance: IBUPROFEN
     Indication: BACK PAIN
     Dosage: LOT NUMBER: 120016173,120016174,120016175
     Route: 048
     Dates: start: 20170331

REACTIONS (2)
  - Nephrolithiasis [None]
  - Haematuria [Recovered/Resolved]

NARRATIVE: CASE EVENT DATE: 20170331
